FAERS Safety Report 19987970 (Version 1)
Quarter: 2021Q4

REPORT INFORMATION
  Report Type: Other
  Country: BG (occurrence: BG)
  Receive Date: 20211022
  Receipt Date: 20211022
  Transmission Date: 20220304
  Serious: Yes (Other)
  Sender: FDA-Public Use
  Company Number: BG-INVATECH-000150

PATIENT
  Age: 31 Year
  Sex: Female

DRUGS (6)
  1. PYRIDOSTIGMINE [Suspect]
     Active Substance: PYRIDOSTIGMINE
     Indication: Myasthenia gravis
     Dosage: 8 X 60 MG/24 H
     Route: 048
  2. PREDNISONE [Suspect]
     Active Substance: PREDNISONE
     Indication: Myasthenia gravis
     Dosage: 40 MG/24 H
  3. NADROPARIN [Concomitant]
     Active Substance: NADROPARIN
     Indication: COVID-19 treatment
     Dosage: 0.3 ML/24 H
  4. VITAMIN C [Concomitant]
     Active Substance: ASCORBIC ACID
     Indication: COVID-19 treatment
     Dosage: 1000 MG/24 H
  5. VITAMIN D [Concomitant]
     Active Substance: VITAMIN D NOS
     Indication: COVID-19 treatment
     Dosage: 10,000 IU
  6. PREDNISONE [Suspect]
     Active Substance: PREDNISONE
     Indication: Myasthenia gravis
     Dosage: 20 MG/24 H

REACTIONS (2)
  - Exposure during pregnancy [Unknown]
  - Myasthenia gravis [Recovered/Resolved]
